FAERS Safety Report 5918915-1 (Version None)
Quarter: 2008Q4

REPORT INFORMATION
  Report Type: 
  Country: None (occurrence: None)
  Receive Date: 20081015
  Receipt Date: 20080912
  Transmission Date: 20090506
  Serious: Yes (Hospitalization)
  Sender: FDA-Public Use
  Company Number: US-AMGEN-STX307452

PATIENT
  Sex: Female

DRUGS (16)
  1. KINERET [Suspect]
     Indication: RHEUMATOID ARTHRITIS
     Route: 058
     Dates: start: 20020909
  2. SULFASALAZINE [Suspect]
     Route: 048
     Dates: start: 20020402
  3. PERCOCET [Concomitant]
     Route: 065
     Dates: start: 20020301
  4. K-DUR [Concomitant]
     Route: 065
  5. RISPERDAL [Concomitant]
     Route: 065
  6. PRILOSEC [Concomitant]
     Route: 065
  7. PROZAC [Concomitant]
     Route: 065
  8. LASIX [Concomitant]
     Route: 065
  9. TOPROL-XL [Concomitant]
     Route: 065
  10. VIOXX [Concomitant]
     Route: 065
  11. TEGRETOL [Concomitant]
     Route: 065
  12. NORVASC [Concomitant]
     Route: 065
  13. AMBIEN [Concomitant]
     Route: 065
  14. DARVOCET-N 100 [Concomitant]
     Route: 065
  15. COMBIVENT [Concomitant]
     Route: 055
  16. FLOVENT [Concomitant]
     Route: 055

REACTIONS (2)
  - PERICARDIAL EFFUSION [None]
  - PNEUMONIA [None]
